FAERS Safety Report 8829444 (Version 2)
Quarter: 2012Q4

REPORT INFORMATION
  Report Type: Report from Study
  Country: DE (occurrence: DE)
  Receive Date: 20121008
  Receipt Date: 20121009
  Transmission Date: 20130627
  Serious: Yes (Death)
  Sender: FDA-Public Use
  Company Number: DE-ROCHE-1013722

PATIENT
  Age: 50 Year
  Sex: Female
  Weight: 67.3 kg

DRUGS (1)
  1. ZELBORAF [Suspect]
     Indication: METASTATIC MALIGNANT MELANOMA
     Dosage: Date of last dose prior to SAE: 08/Nov/2011
     Route: 048
     Dates: start: 20110721, end: 20111108

REACTIONS (1)
  - Intracranial tumour haemorrhage [Fatal]
